FAERS Safety Report 5526053-5 (Version None)
Quarter: 2007Q4

REPORT INFORMATION
  Report Type: 
  Country: None (occurrence: None)
  Receive Date: 20071120
  Receipt Date: 20071108
  Transmission Date: 20080405
  Serious: Yes (Hospitalization)
  Sender: FDA-Public Use
  Company Number: CLOF-10751

PATIENT
  Age: 65 Year
  Sex: Male
  Weight: 73.5 kg

DRUGS (7)
  1. CLOFARABINE. MFR: GENZYME [Suspect]
     Indication: NON-HODGKIN'S LYMPHOMA
     Dosage: 30 MG/M2 QD X 5; IV
     Route: 042
     Dates: start: 20070901, end: 20070901
  2. ETOPOSIDE [Suspect]
     Indication: NON-HODGKIN'S LYMPHOMA
     Dosage: 60 MG/KG ONCE; IV
     Route: 042
     Dates: start: 20070901, end: 20070901
  3. CYCLOPHOSPHAMIDE [Suspect]
     Indication: NON-HODGKIN'S LYMPHOMA
     Dosage: 100MG/KG ONCE; IV
     Route: 042
     Dates: start: 20070901, end: 20070901
  4. ZITHROMAX [Concomitant]
  5. ANTIEMETICS [Concomitant]
  6. FLUIDS [Concomitant]
  7. PROHYLACTIC MEDICATIONS [Concomitant]

REACTIONS (17)
  - ACUTE MYOCARDIAL INFARCTION [None]
  - ASTHENIA [None]
  - CLOSTRIDIUM DIFFICILE COLITIS [None]
  - COUGH [None]
  - FALL [None]
  - FEBRILE NEUTROPENIA [None]
  - FLUID OVERLOAD [None]
  - GAIT DISTURBANCE [None]
  - GASTROINTESTINAL HAEMORRHAGE [None]
  - GAZE PALSY [None]
  - HAEMATURIA [None]
  - NAUSEA [None]
  - PANCYTOPENIA [None]
  - POSTURING [None]
  - STEM CELL TRANSPLANT [None]
  - UNRESPONSIVE TO STIMULI [None]
  - VOMITING [None]
